FAERS Safety Report 5321177-X (Version None)
Quarter: 2007Q2

REPORT INFORMATION
  Report Type: 
  Country: None (occurrence: None)
  Receive Date: 20070507
  Receipt Date: 20070507
  Transmission Date: 20071010
  Serious: No
  Sender: FDA-Public Use
  Company Number: None

PATIENT
  Age: 33 Year
  Sex: Female
  Weight: 86.1834 kg

DRUGS (1)
  1. WELLBUTRIN XL [Suspect]
     Indication: STRESS
     Dosage: ONE   ONCE DAILY  ORALLY
     Route: 048
     Dates: start: 20060901, end: 20070501

REACTIONS (6)
  - ABNORMAL BEHAVIOUR [None]
  - ALCOHOL USE [None]
  - IRRITABILITY [None]
  - MENTAL DISORDER [None]
  - PERSONALITY CHANGE [None]
  - TREMOR [None]
